FAERS Safety Report 8592924-9 (Version None)
Quarter: 2012Q3

REPORT INFORMATION
  Report Type: 
  Country: None (occurrence: None)
  Receive Date: 20120814
  Receipt Date: 20120809
  Transmission Date: 20120928
  Serious: Yes (Hospitalization, Disabling, Other)
  Sender: FDA-Public Use
  Company Number: US-009507513-2011SP031111

PATIENT

DRUGS (1)
  1. NUVARING [Suspect]
     Indication: CONTRACEPTION
     Dates: start: 20090301, end: 20090801

REACTIONS (5)
  - SINUSITIS [None]
  - PNEUMONIA [None]
  - BRONCHITIS [None]
  - PULMONARY EMBOLISM [None]
  - INFLUENZA [None]
